FAERS Safety Report 14381095 (Version 1)
Quarter: 2018Q1

REPORT INFORMATION
  Report Type: Spontaneous
  Country: US (occurrence: US)
  Receive Date: 20180111
  Receipt Date: 20180111
  Transmission Date: 20180509
  Serious: No
  Sender: FDA-Public Use
  Company Number: None

PATIENT
  Sex: Male
  Weight: 71.67 kg

DRUGS (2)
  1. RASUVO [Suspect]
     Active Substance: METHOTREXATE SODIUM
     Indication: RHEUMATOID ARTHRITIS
     Route: 058
     Dates: start: 201705
  2. RASUVO [Suspect]
     Active Substance: METHOTREXATE SODIUM
     Indication: CARPAL TUNNEL SYNDROME
     Route: 058
     Dates: start: 201705

REACTIONS (2)
  - Drug dose omission [None]
  - Malaise [None]
